FAERS Safety Report 17568583 (Version 1)
Quarter: 2020Q1

REPORT INFORMATION
  Report Type: Spontaneous
  Country: SE (occurrence: SE)
  Receive Date: 20200320
  Receipt Date: 20200320
  Transmission Date: 20200409
  Serious: Yes (Hospitalization, Other)
  Sender: FDA-Public Use
  Company Number: SE-009507513-2003SWE006000

PATIENT
  Age: 53 Year
  Sex: Male

DRUGS (2)
  1. ERGENYL [Concomitant]
     Active Substance: VALPROIC ACID
  2. TEMOZOLOMIDE. [Suspect]
     Active Substance: TEMOZOLOMIDE
     Indication: GLIOBLASTOMA MULTIFORME
     Dosage: 420 MILLIGRAM, QD

REACTIONS (2)
  - Neoplasm progression [Unknown]
  - Thrombocytopenia [Recovered/Resolved]
